FAERS Safety Report 6388419-3 (Version None)
Quarter: 2009Q4

REPORT INFORMATION
  Report Type: 
  Country: None (occurrence: None)
  Receive Date: 20091005
  Receipt Date: 20091001
  Transmission Date: 20100525
  Serious: Yes (Hospitalization)
  Sender: FDA-Public Use
  Company Number: US-BAYER-200930168NA

PATIENT
  Age: 48 Year
  Sex: Male
  Weight: 111 kg

DRUGS (9)
  1. AVELOX [Suspect]
     Indication: DRUG USE FOR UNKNOWN INDICATION
  2. PROMETHAZINE HCL AND CODEINE PHOSPHATE [Suspect]
     Indication: DRUG USE FOR UNKNOWN INDICATION
     Dosage: EVERY 6 HOURS PRN
     Route: 048
     Dates: start: 20081015
  3. ASPIRIN [Concomitant]
     Route: 048
  4. COMBIVENT [Concomitant]
     Dosage: EVERY FOUR HOURS PRN
     Route: 055
  5. ALBUTEROL [Concomitant]
     Dosage: TOTAL DAILY DOSE: 8 MG
  6. DIOVAN [Concomitant]
     Route: 048
  7. KEFLEX [Concomitant]
     Dosage: TOTAL DAILY DOSE: 1500 MG
     Route: 048
  8. UNIPHYL [Concomitant]
     Route: 048
  9. CYCLOPENTOLATE HYDROCHLORIDE [Concomitant]
     Dosage: 1 GTT RIGHT EYE TWICE A WEEK

REACTIONS (10)
  - AGGRESSION [None]
  - AGITATION [None]
  - BLOOD PRESSURE INCREASED [None]
  - DYSPNOEA [None]
  - ERYTHEMA [None]
  - FLUSHING [None]
  - HYPERSENSITIVITY [None]
  - RESPIRATORY FAILURE [None]
  - SYNCOPE [None]
  - WHEEZING [None]
